FAERS Safety Report 10601644 (Version 1)
Quarter: 2014Q4

REPORT INFORMATION
  Report Type: Spontaneous
  Country: ES (occurrence: None)
  Receive Date: 20141120
  Receipt Date: 20141120
  Transmission Date: 20150529
  Serious: Yes (Hospitalization, Other)
  Sender: FDA-Public Use
  Company Number: None

PATIENT
  Age: 66 Year
  Sex: Female

DRUGS (7)
  1. SOLIFENACIN (SOLIFENACIN) [Suspect]
     Active Substance: SOLIFENACIN
     Indication: URINARY INCONTINENCE
     Route: 048
     Dates: start: 2008
  2. LORAZEPAM. [Concomitant]
     Active Substance: LORAZEPAM
  3. BACLOFEN (BACLOFEN) [Suspect]
     Active Substance: BACLOFEN
     Indication: MUSCLE SPASMS
     Route: 048
     Dates: start: 1995
  4. ASA [Concomitant]
     Active Substance: ASPIRIN
  5. BIMATOPROST. [Concomitant]
     Active Substance: BIMATOPROST
  6. FOSFOMYCIN [Concomitant]
     Active Substance: FOSFOMYCIN
  7. OMEPRAZOLE. [Concomitant]
     Active Substance: OMEPRAZOLE

REACTIONS (10)
  - Dysarthria [None]
  - Loss of consciousness [None]
  - Confusional state [None]
  - Overdose [None]
  - Dry mouth [None]
  - Urinary tract infection [None]
  - Dystonia [None]
  - Encephalopathy [None]
  - Renal impairment [None]
  - Disorientation [None]
